FAERS Safety Report 10668316 (Version 2)
Quarter: 2015Q1

REPORT INFORMATION
  Report Type: Spontaneous
  Country: US (occurrence: US)
  Receive Date: 20141222
  Receipt Date: 20150212
  Transmission Date: 20150720
  Serious: Yes (Other)
  Sender: FDA-Public Use
  Company Number: US-PFIZER INC-2014346987

PATIENT
  Age: 52 Year
  Sex: Male
  Weight: 88 kg

DRUGS (6)
  1. FLOMAX ^CSL^ [Concomitant]
     Dosage: UNK
  2. VIAGRA [Suspect]
     Active Substance: SILDENAFIL CITRATE
     Indication: ERECTILE DYSFUNCTION
     Dosage: 100 MG, AS NEEDED
     Route: 048
     Dates: start: 20120605
  3. SPIRIVA [Suspect]
     Active Substance: TIOTROPIUM BROMIDE MONOHYDRATE
  4. PRILOSEC [Concomitant]
     Active Substance: OMEPRAZOLE MAGNESIUM
  5. TIKOSYN [Suspect]
     Active Substance: DOFETILIDE
     Indication: ATRIAL FIBRILLATION
     Dosage: 500 ?G, 2X/DAY (Q 12 H)
     Route: 048
     Dates: start: 20120605
  6. WARFARIN [Concomitant]
     Active Substance: WARFARIN
     Dosage: UNK

REACTIONS (5)
  - Eye pain [Unknown]
  - Blood pressure increased [Unknown]
  - Weight increased [Unknown]
  - Visual impairment [Unknown]
  - Headache [Unknown]
